FAERS Safety Report 10900284 (Version 1)
Quarter: 2015Q1

REPORT INFORMATION
  Report Type: Spontaneous
  Country: NO (occurrence: NO)
  Receive Date: 20150310
  Receipt Date: 20150310
  Transmission Date: 20150721
  Serious: Yes (Other)
  Sender: FDA-Public Use
  Company Number: NO-ACCORD-028968

PATIENT
  Age: 54 Year
  Sex: Male

DRUGS (1)
  1. METHOTREXATE [Suspect]
     Active Substance: METHOTREXATE
     Indication: RHEUMATOID ARTHRITIS
     Dosage: 20 MG, QW

REACTIONS (4)
  - Nausea [Unknown]
  - Listless [Unknown]
  - Off label use [Unknown]
  - Drug ineffective [Unknown]
